FAERS Safety Report 4444536-6 (Version None)
Quarter: 2004Q3

REPORT INFORMATION
  Report Type: 
  Country: None (occurrence: None)
  Receive Date: 20040902
  Receipt Date: 20040823
  Transmission Date: 20050211
  Serious: Yes (Death)
  Sender: FDA-Public Use
  Company Number: USA-2004-0016543

PATIENT
  Age: 41 Year
  Sex: Male
  Weight: 102 kg

DRUGS (5)
  1. OXYCONTIN [Suspect]
     Indication: PAIN
     Dosage: 40 MG,
  2. HYDROCODONE (HYDROCODONE) [Suspect]
  3. PAROXETINE HCL [Suspect]
  4. MIRTAZAPINE [Suspect]
  5. PROMETHAZINE [Suspect]

REACTIONS (9)
  - ACCIDENT [None]
  - AORTO-ILIAC ARTERIAL STENOSIS [None]
  - ARTERIOSCLEROSIS [None]
  - CEREBRAL ATHEROSCLEROSIS [None]
  - COMA [None]
  - CORONARY ARTERY ATHEROSCLEROSIS [None]
  - CYANOSIS [None]
  - PULMONARY OEDEMA [None]
  - THERAPEUTIC AGENT TOXICITY [None]
